FAERS Safety Report 7790940-8 (Version None)
Quarter: 2011Q3

REPORT INFORMATION
  Report Type: 
  Country: None (occurrence: None)
  Receive Date: 20110930
  Receipt Date: 20110930
  Transmission Date: 20111222
  Serious: Yes (Life-Threatening, Other)
  Sender: FDA-Public Use
  Company Number: None

PATIENT
  Age: 56 Year
  Sex: Female
  Weight: 58.059 kg

DRUGS (1)
  1. DYSPORT [Suspect]

REACTIONS (13)
  - IMPAIRED WORK ABILITY [None]
  - NO THERAPEUTIC RESPONSE [None]
  - EYE INFECTION [None]
  - INSOMNIA [None]
  - EYE PENETRATION [None]
  - VITREOUS FLOATERS [None]
  - LACRIMATION DECREASED [None]
  - VISUAL IMPAIRMENT [None]
  - LACRIMAL DISORDER [None]
  - ACTIVITIES OF DAILY LIVING IMPAIRED [None]
  - PNEUMONIA [None]
  - EYE HAEMORRHAGE [None]
  - EXTRANODAL MARGINAL ZONE B-CELL LYMPHOMA (MALT TYPE) [None]
